FAERS Safety Report 5333553-X (Version None)
Quarter: 2007Q2

REPORT INFORMATION
  Report Type: 
  Country: None (occurrence: None)
  Receive Date: 20070524
  Receipt Date: 20070515
  Transmission Date: 20071010
  Serious: Yes (Hospitalization, Other)
  Sender: FDA-Public Use
  Company Number: ATWYE814828FEB07

PATIENT
  Weight: 24 kg

DRUGS (1)
  1. REFACTO [Suspect]

REACTIONS (2)
  - FACTOR VIII INHIBITION [None]
  - POOR VENOUS ACCESS [None]
